FAERS Safety Report 10039758 (Version 1)
Quarter: 2014Q1

REPORT INFORMATION
  Report Type: Spontaneous
  Country: US (occurrence: US)
  Receive Date: 20140326
  Receipt Date: 20140326
  Transmission Date: 20141002
  Serious: No
  Sender: FDA-Public Use
  Company Number: US-TEVA-467668USA

PATIENT
  Age: 81 Year
  Sex: Female
  Weight: 60.84 kg

DRUGS (10)
  1. PROAIR HFA [Suspect]
     Indication: MACULAR DEGENERATION
     Route: 055
     Dates: start: 20140306
  2. FLONASE [Concomitant]
  3. AGRYLIN [Concomitant]
     Indication: BLOOD DISORDER
  4. LOVASTATIN [Concomitant]
     Indication: BLOOD CHOLESTEROL
  5. AMLODIPINE [Concomitant]
     Indication: HYPERTENSION
  6. DORZOLAMIDE [Concomitant]
     Indication: MACULAR DEGENERATION
  7. TRAVATAN [Concomitant]
     Indication: MACULAR DEGENERATION
  8. BRIMONIDINE [Concomitant]
     Indication: MACULAR DEGENERATION
  9. CENTRUM SILVER [Concomitant]
     Indication: VITAMIN SUPPLEMENTATION
  10. PANTOPRAZOLE [Concomitant]
     Indication: DYSPEPSIA

REACTIONS (2)
  - Diarrhoea [Unknown]
  - Off label use [Unknown]
